FAERS Safety Report 10004035 (Version 2)
Quarter: 2014Q1

REPORT INFORMATION
  Report Type: Spontaneous
  Country: US (occurrence: US)
  Receive Date: 20140312
  Receipt Date: 20140312
  Transmission Date: 20141002
  Serious: No
  Sender: FDA-Public Use
  Company Number: US-INCYTE CORPORATION-2013IN002935

PATIENT
  Age: 65 Year
  Sex: Male

DRUGS (4)
  1. JAKAFI [Suspect]
     Indication: MYELOFIBROSIS
     Dosage: 20 MG, QD
     Route: 048
     Dates: end: 201311
  2. ALLOPURINOL [Concomitant]
  3. COLCHICINE [Concomitant]
  4. HYDROXYUREA [Concomitant]

REACTIONS (5)
  - Malaise [Unknown]
  - Night sweats [Unknown]
  - Abdominal pain [Unknown]
  - Disease progression [None]
  - No therapeutic response [Unknown]
